FAERS Safety Report 9735846 (Version 1)
Quarter: 2013Q4

REPORT INFORMATION
  Report Type: Spontaneous
  Country: GB (occurrence: GB)
  Receive Date: 20131206
  Receipt Date: 20131206
  Transmission Date: 20140711
  Serious: Yes (Other)
  Sender: FDA-Public Use
  Company Number: GB-WATSON-2013-22318

PATIENT
  Sex: Female
  Weight: 7 kg

DRUGS (3)
  1. PROPRANOLOL (UNKNOWN) [Suspect]
     Indication: HAEMANGIOMA
     Dosage: 2 MG/KG, Q24H
     Route: 048
     Dates: start: 20131017, end: 20131018
  2. FLUCLOXACILLIN (UNKNOWN) [Suspect]
     Indication: HAEMANGIOMA
     Dosage: UNK
     Route: 048
     Dates: start: 20131017, end: 20131018
  3. PARACETAMOL [Concomitant]
     Indication: PAIN
     Route: 048
     Dates: start: 20131017

REACTIONS (1)
  - Exaggerated startle response [Recovered/Resolved]
